FAERS Safety Report 19482251 (Version 1)
Quarter: 2021Q2

REPORT INFORMATION
  Report Type: Spontaneous
  Country: US (occurrence: US)
  Receive Date: 20210630
  Receipt Date: 20210630
  Transmission Date: 20210717
  Serious: Yes (Other)
  Sender: FDA-Public Use
  Company Number: None

PATIENT
  Age: 46 Year
  Sex: Female
  Weight: 119.3 kg

DRUGS (1)
  1. PARAGARD T 380A [Suspect]
     Active Substance: COPPER

REACTIONS (5)
  - Vaginal haemorrhage [None]
  - Complication of device removal [None]
  - Device dislocation [None]
  - Pain [None]
  - Embedded device [None]

NARRATIVE: CASE EVENT DATE: 20210310
